FAERS Safety Report 6177795-2 (Version None)
Quarter: 2009Q2

REPORT INFORMATION
  Report Type: 
  Country: None (occurrence: None)
  Receive Date: 20090504
  Receipt Date: 20090422
  Transmission Date: 20091009
  Serious: Yes (Other)
  Sender: FDA-Public Use
  Company Number: CH-PFIZER INC-2009201556

PATIENT

DRUGS (2)
  1. LYRICA [Suspect]
     Dosage: 150 MG, 2X/DAY
  2. LYRICA [Suspect]
     Dosage: 150 MG, 2X/DAY

REACTIONS (7)
  - ARTHRALGIA [None]
  - EYE SWELLING [None]
  - HEADACHE [None]
  - LYMPHOEDEMA [None]
  - MUSCULOSKELETAL STIFFNESS [None]
  - MYALGIA [None]
  - URTICARIA [None]
